FAERS Safety Report 16700946 (Version 1)
Quarter: 2019Q3

REPORT INFORMATION
  Report Type: Spontaneous
  Country: NL (occurrence: NL)
  Receive Date: 20190814
  Receipt Date: 20190814
  Transmission Date: 20191004
  Serious: Yes (Other)
  Sender: FDA-Public Use
  Company Number: NL-LUPIN PHARMACEUTICALS INC.-2019-04391

PATIENT
  Age: 27 Year
  Sex: Female

DRUGS (5)
  1. PAROXETINE. [Suspect]
     Active Substance: PAROXETINE
     Indication: ANXIETY
     Dosage: 10 MILLIGRAM
     Route: 065
  2. PAROXETINE. [Suspect]
     Active Substance: PAROXETINE
     Dosage: 5 MILLIGRAM
     Route: 065
  3. PAROXETINE. [Suspect]
     Active Substance: PAROXETINE
     Indication: DEPRESSION
     Dosage: 20 MILLIGRAM
     Route: 065
  4. PAROXETINE. [Suspect]
     Active Substance: PAROXETINE
     Dosage: 2 MILLIGRAM, PER WEEK
     Route: 065
  5. PAROXETINE. [Suspect]
     Active Substance: PAROXETINE
     Dosage: 0.5 MILLIGRAM PER WEEK
     Route: 065

REACTIONS (2)
  - Withdrawal syndrome [Recovered/Resolved]
  - Weight increased [Recovered/Resolved]
